FAERS Safety Report 12187469 (Version 2)
Quarter: 2016Q1

REPORT INFORMATION
  Report Type: Spontaneous
  Country: GB (occurrence: GB)
  Receive Date: 20160317
  Receipt Date: 20160321
  Transmission Date: 20160526
  Serious: Yes (Death, Life-Threatening, Hospitalization)
  Sender: FDA-Public Use
  Company Number: GB-PFIZER INC-2016150224

PATIENT
  Age: 53 Year
  Sex: Male

DRUGS (1)
  1. CRIZOTINIB [Suspect]
     Active Substance: CRIZOTINIB
     Indication: NON-SMALL CELL LUNG CANCER
     Dosage: 250 MG, 2X/DAY
     Dates: start: 20160101

REACTIONS (8)
  - General physical health deterioration [Unknown]
  - Disease progression [Unknown]
  - Non-small cell lung cancer [Unknown]
  - Malaise [Unknown]
  - Dyspnoea [Unknown]
  - Pancreatitis [Unknown]
  - Death [Fatal]
  - Pneumonitis [Unknown]

NARRATIVE: CASE EVENT DATE: 2016
